FAERS Safety Report 10052929 (Version 1)
Quarter: 2014Q2

REPORT INFORMATION
  Report Type: Spontaneous
  Country: DK (occurrence: DK)
  Receive Date: 20140402
  Receipt Date: 20140402
  Transmission Date: 20141212
  Serious: Yes (Hospitalization)
  Sender: FDA-Public Use
  Company Number: DK-ASTRAZENECA-2014SE20564

PATIENT
  Age: 79 Year
  Sex: Female

DRUGS (8)
  1. LIDOCAINE [Suspect]
     Indication: ENDOSCOPY UPPER GASTROINTESTINAL TRACT
     Route: 065
     Dates: start: 20140113
  2. MIDAZOLAM ^HAMELN^ [Suspect]
     Indication: ENDOSCOPY UPPER GASTROINTESTINAL TRACT
     Route: 042
     Dates: start: 20140113
  3. DIMETHYL POLYSILOXANE [Suspect]
     Indication: ENDOSCOPY UPPER GASTROINTESTINAL TRACT
     Route: 065
     Dates: start: 20140113
  4. AMLODIPIN ^ACTAVIS^ [Concomitant]
     Indication: HYPERTENSION
  5. CITALOPRAM  ^ARROW^ [Concomitant]
     Indication: ANXIETY
  6. ENACODAN [Concomitant]
     Indication: HYPERTENSION
  7. ENTOCORT [Concomitant]
     Indication: COLITIS
  8. ESTRADIOL DLF [Concomitant]

REACTIONS (3)
  - Lip swelling [Recovered/Resolved]
  - Swelling face [Recovered/Resolved]
  - Hypersensitivity [Recovered/Resolved]
